FAERS Safety Report 15034778 (Version 2)
Quarter: 2018Q3

REPORT INFORMATION
  Report Type: Spontaneous
  Country: FR (occurrence: FR)
  Receive Date: 20180620
  Receipt Date: 20180717
  Transmission Date: 20181010
  Serious: Yes (Death, Life-Threatening)
  Sender: FDA-Public Use
  Company Number: FR-TEVA-2018-FR-906907

PATIENT
  Age: 28 Year
  Sex: Male

DRUGS (14)
  1. LANTUS SOLOSTAR [Suspect]
     Active Substance: INSULIN GLARGINE
     Dosage: 40 DOSAGE FORMS DAILY; 100 UNITS / ML
  2. TERCIAN 100 MG, COMPRIM? PELLICUL? S?CABLE [Suspect]
     Active Substance: CYAMEMAZINE
     Dosage: 5 DOSAGE FORMS DAILY; DIVISIBLE COATED TABLET
     Route: 065
  3. ACTISKENAN 30 MG, G?LULE [Suspect]
     Active Substance: MORPHINE SULFATE
     Dosage: 4 DOSAGE FORMS DAILY;
     Route: 065
  4. THIOCOLCHICOSIDE BIOGARAN 4 MG, COMPRIM? [Suspect]
     Active Substance: THIOCOLCHICOSIDE
     Dosage: COMPRESSED
     Route: 065
  5. FENOFIBRATE EG [Suspect]
     Active Substance: FENOFIBRATE
     Dosage: 145 MILLIGRAM DAILY;
     Route: 065
  6. HUMALOG KWIKPEN [Suspect]
     Active Substance: INSULIN LISPRO
     Dosage: 12 DOSAGE FORMS DAILY; 100 UI/ML KWIKPEN, SOLUTION INJECTABLE
     Route: 065
  7. FUROSEMIDE BIOGARAN 40 MG, COMPRIM? S?CABLE [Suspect]
     Active Substance: FUROSEMIDE
     Dosage: 1 DOSAGE FORMS DAILY; TABLET BREACKABLE
     Route: 065
  8. ZOPICLONE BIOGARAN 7,5 MG, COMPRIM? PELLICUL? S?CABLE [Suspect]
     Active Substance: ZOPICLONE
     Dosage: 2 DOSAGE FORMS DAILY; DIVISIBLE COATED TABLET
     Route: 065
  9. NOCTAMIDE 2 MG, COMPRIM? S?CABLE [Suspect]
     Active Substance: LORMETAZEPAM
     Dosage: 1 DOSAGE FORMS DAILY; TABLET BREACKABLE
     Route: 065
  10. FLUOXETINE [Suspect]
     Active Substance: FLUOXETINE HYDROCHLORIDE
     Dosage: 2 DOSAGE FORMS DAILY;
     Route: 065
  11. NUCTALON [Suspect]
     Active Substance: ESTAZOLAM
     Dosage: 3 DOSAGE FORMS DAILY;
     Route: 065
  12. METFORMINE ARROW 850 MG, COATED TABLET [Suspect]
     Active Substance: METFORMIN HYDROCHLORIDE
     Dosage: 2 DOSAGE FORMS DAILY;
     Route: 065
  13. BROMAZEPAM BIOGARAN 6 MG, COMPRIM? QUADRIS?CABLE [Suspect]
     Active Substance: BROMAZEPAM
     Dosage: 4 DOSAGE FORMS DAILY;
     Route: 065
  14. APROVEL 300 MG, COMPRIM? [Suspect]
     Active Substance: IRBESARTAN
     Dosage: 1 DOSAGE FORMS DAILY; COMPRESSED
     Route: 065

REACTIONS (4)
  - Death [Fatal]
  - Myocardial infarction [Fatal]
  - Acute myocardial infarction [Fatal]
  - Overdose [Not Recovered/Not Resolved]
